FAERS Safety Report 6418325-7 (Version None)
Quarter: 2009Q4

REPORT INFORMATION
  Report Type: 
  Country: None (occurrence: None)
  Receive Date: 20091021
  Receipt Date: 20090618
  Transmission Date: 20100525
  Serious: No
  Sender: FDA-Public Use
  Company Number: ALL1-2009-01692

PATIENT
  Age: 28 Year
  Sex: Female
  Weight: 77.1 kg

DRUGS (3)
  1. VYVANSE [Suspect]
     Indication: ATTENTION DEFICIT/HYPERACTIVITY DISORDER
     Dosage: 30 MG, 1X/DAY:QD, ORAL
     Route: 048
     Dates: start: 20090611, end: 20090618
  2. SEROQUEL [Concomitant]
  3. LAMICTAL [Concomitant]

REACTIONS (5)
  - ANXIETY [None]
  - CHEST PAIN [None]
  - HEART RATE INCREASED [None]
  - HYPOAESTHESIA FACIAL [None]
  - MUSCULAR WEAKNESS [None]
